FAERS Safety Report 7475623-6 (Version None)
Quarter: 2011Q2

REPORT INFORMATION
  Report Type: 
  Country: None (occurrence: None)
  Receive Date: 20110504
  Receipt Date: 20110419
  Transmission Date: 20111010
  Serious: Yes (Other)
  Sender: FDA-Public Use
  Company Number: AUR-APL-2011-01236

PATIENT
  Sex: Male

DRUGS (3)
  1. OMEPRAZOLE [Suspect]
     Dosage: 600MG-DAILY
  2. SIMVASTATIN [Suspect]
     Indication: BLOOD CHOLESTEROL
     Dosage: 20MG
  3. IBUPROFEN [Concomitant]

REACTIONS (3)
  - RENAL DISORDER [None]
  - BURNING SENSATION [None]
  - PERIPHERAL COLDNESS [None]
